FAERS Safety Report 6217258-9 (Version None)
Quarter: 2009Q2

REPORT INFORMATION
  Report Type: 
  Country: None (occurrence: None)
  Receive Date: 20090608
  Receipt Date: 20090526
  Transmission Date: 20091009
  Serious: Yes (Other)
  Sender: FDA-Public Use
  Company Number: FR-PFIZER INC-2008100284

PATIENT
  Sex: Male
  Weight: 71 kg

DRUGS (1)
  1. CHAMPIX [Suspect]
     Indication: SMOKING CESSATION THERAPY
     Dosage: 0.5 MG, 1X/DAY
     Route: 048
     Dates: start: 20070530, end: 20070501

REACTIONS (2)
  - DISTURBANCE IN ATTENTION [None]
  - VISUAL FIELD DEFECT [None]
